FAERS Safety Report 11311860 (Version 2)
Quarter: 2015Q3

REPORT INFORMATION
  Report Type: Spontaneous
  Country: IL (occurrence: IL)
  Receive Date: 20150727
  Receipt Date: 20150803
  Transmission Date: 20151125
  Serious: Yes (Other)
  Sender: FDA-Public Use
  Company Number: IL-BIOGENIDEC-2015BI101238

PATIENT
  Age: 44 Year
  Sex: Female

DRUGS (2)
  1. FAMPYRA [Concomitant]
     Active Substance: DALFAMPRIDINE
     Indication: PRODUCT USED FOR UNKNOWN INDICATION
     Dates: start: 201210
  2. TYSABRI [Suspect]
     Active Substance: NATALIZUMAB
     Indication: PRODUCT USED FOR UNKNOWN INDICATION
     Route: 042
     Dates: start: 201108, end: 20150507

REACTIONS (5)
  - Erythema [Unknown]
  - Optic neuritis [Unknown]
  - Pruritus [Not Recovered/Not Resolved]
  - Swelling face [Unknown]
  - Oral herpes [Unknown]

NARRATIVE: CASE EVENT DATE: 201504
